FAERS Safety Report 23519012 (Version 1)
Quarter: 2024Q1

REPORT INFORMATION
  Report Type: Spontaneous
  Country: HR (occurrence: HR)
  Receive Date: 20240213
  Receipt Date: 20240213
  Transmission Date: 20240410
  Serious: Yes (Other)
  Sender: FDA-Public Use
  Company Number: HR-002147023-NVSC2024HR007680

PATIENT
  Age: 40 Year
  Sex: Female

DRUGS (3)
  1. LEQVIO [Suspect]
     Active Substance: INCLISIRAN SODIUM
     Indication: Type IIa hyperlipidaemia
     Dosage: 284 MG (1X AFTER 3 MONTHS,THEN 1 X EVERY 6  MONTHS)
     Route: 058
     Dates: start: 20230301, end: 20230301
  2. LEQVIO [Suspect]
     Active Substance: INCLISIRAN SODIUM
     Dosage: 284 MG (1X AFTER 3 MONTHS,THEN 1 X EVERY 6  MONTHS)
     Route: 058
     Dates: start: 20230601, end: 20230601
  3. LEQVIO [Suspect]
     Active Substance: INCLISIRAN SODIUM
     Dosage: 284 MG (1X AFTER 3 MONTHS,THEN 1 X EVERY 6  MONTHS)
     Route: 058
     Dates: start: 20231214, end: 20231214

REACTIONS (6)
  - Diarrhoea [Unknown]
  - Vomiting [Unknown]
  - Nausea [Unknown]
  - Headache [Unknown]
  - Dyspepsia [Unknown]
  - Dizziness [Unknown]

NARRATIVE: CASE EVENT DATE: 20230301
